FAERS Safety Report 9982199 (Version 1)
Quarter: 2014Q1

REPORT INFORMATION
  Report Type: Spontaneous
  Country: US (occurrence: None)
  Receive Date: 20140306
  Receipt Date: 20140306
  Transmission Date: 20141002
  Serious: Yes (Hospitalization)
  Sender: FDA-Public Use
  Company Number: None

PATIENT
  Age: 81 Year
  Sex: Male
  Weight: 73.6 kg

DRUGS (2)
  1. CARBOPLATIN [Suspect]
     Dates: end: 20140107
  2. PACLITAXEL (TAXOL) [Suspect]
     Dates: end: 20140107

REACTIONS (4)
  - Dizziness [None]
  - Hypotension [None]
  - Dyspnoea [None]
  - Pain [None]
